FAERS Safety Report 6012039-3 (Version None)
Quarter: 2008Q4

REPORT INFORMATION
  Report Type: 
  Country: None (occurrence: None)
  Receive Date: 20081218
  Receipt Date: 20081105
  Transmission Date: 20090506
  Serious: No
  Sender: FDA-Public Use
  Company Number: US-ASTRAZENECA-2008UW24696

PATIENT
  Age: 77 Year
  Sex: Female
  Weight: 74.4 kg

DRUGS (9)
  1. CRESTOR [Suspect]
     Indication: BLOOD CHOLESTEROL INCREASED
     Route: 048
     Dates: start: 20081022
  2. NIFEDIPINE [Concomitant]
  3. DIOVAN [Concomitant]
  4. HYDROCHLOROTHIAZIDE [Concomitant]
  5. ATENOLOL [Concomitant]
  6. M.V.I. [Concomitant]
  7. CALCIUM [Concomitant]
  8. ASPIRIN [Concomitant]
  9. VITAMIN D [Concomitant]

REACTIONS (1)
  - BLOOD PRESSURE INCREASED [None]
